FAERS Safety Report 9514657 (Version 1)
Quarter: 2013Q1

REPORT INFORMATION
  Report Type: Spontaneous
  Country: US (occurrence: None)
  Receive Date: 20130305
  Receipt Date: 20130305
  Transmission Date: 20140127
  Serious: Yes (Other)
  Sender: FDA-Public Use
  Company Number: 163-21880-12090536

PATIENT
  Sex: Male

DRUGS (6)
  1. REVLIMID (LENALIDOMIDE) [Suspect]
     Indication: PLASMA CELL MYELOMA
     Route: 048
     Dates: start: 200811
  2. CELEBREX (CELECOXIB) [Concomitant]
  3. FLOMAX (TAMSULOSIN HYDROCHLORIDE) [Concomitant]
  4. ASA (ACETYLSALICYLIC ACID) [Concomitant]
  5. LUNESTA (ESZOPICLONE) [Concomitant]
  6. CALTRATE (CALCIUM CARBONATE) [Concomitant]

REACTIONS (1)
  - Neutropenia [None]
